FAERS Safety Report 8316427-1 (Version None)
Quarter: 2012Q2

REPORT INFORMATION
  Report Type: 
  Country: None (occurrence: None)
  Receive Date: 20120425
  Receipt Date: 20120425
  Transmission Date: 20120825
  Serious: No
  Sender: FDA-Public Use
  Company Number: None

PATIENT
  Sex: Female
  Weight: 125 kg

DRUGS (1)
  1. PRAVASTATIN [Suspect]
     Indication: BLOOD CHOLESTEROL
     Dosage: ONE ONCE DAILY AT BEDTIME
     Dates: start: 20120117, end: 20120330

REACTIONS (4)
  - MYALGIA [None]
  - DIZZINESS [None]
  - NAUSEA [None]
  - PAIN [None]
